FAERS Safety Report 7961850-8 (Version None)
Quarter: 2011Q4

REPORT INFORMATION
  Report Type: 
  Country: None (occurrence: None)
  Receive Date: 20111202
  Receipt Date: 20111202
  Transmission Date: 20120403
  Serious: Yes (Hospitalization)
  Sender: FDA-Public Use
  Company Number: None

PATIENT
  Sex: Female
  Weight: 58 kg

DRUGS (2)
  1. CARBOPLATIN [Suspect]
     Dosage: 413 MG
     Dates: end: 20111118
  2. TAXOL [Suspect]
     Dosage: 272 MG
     Dates: end: 20111118

REACTIONS (8)
  - DECREASED APPETITE [None]
  - PLEURAL EFFUSION [None]
  - TACHYCARDIA [None]
  - HAEMOGLOBIN ABNORMAL [None]
  - DIARRHOEA [None]
  - PANCYTOPENIA [None]
  - BLOOD MAGNESIUM DECREASED [None]
  - GASTROINTESTINAL DISORDER [None]
